FAERS Safety Report 5758659-2 (Version None)
Quarter: 2008Q2

REPORT INFORMATION
  Report Type: 
  Country: None (occurrence: None)
  Receive Date: 20080507
  Receipt Date: 20070904
  Transmission Date: 20081010
  Serious: Yes (Hospitalization)
  Sender: FDA-Public Use
  Company Number: 237482K07USA

PATIENT
  Age: 42 Year
  Sex: Female

DRUGS (13)
  1. REBIF [Suspect]
     Indication: MULTIPLE SCLEROSIS
     Dosage: 22 MCG, 3 IN 1 WEEKS, SUBCUTANEOUS ; 8.8 MCG, 3 IN 1  WEEKS, SUBCUTANEOUS
     Route: 058
     Dates: start: 20070507, end: 20070910
  2. REBIF [Suspect]
     Indication: MULTIPLE SCLEROSIS
     Dosage: 22 MCG, 3 IN 1 WEEKS, SUBCUTANEOUS ; 8.8 MCG, 3 IN 1  WEEKS, SUBCUTANEOUS
     Route: 058
     Dates: start: 20080121
  3. PULSE STEROIDS (CORTICOSTEROIDS) [Concomitant]
  4. ADDERALL (OBETROL) [Concomitant]
  5. FOSAMAX PLUS D [Suspect]
  6. FIORICET (AXOTAL) [Concomitant]
  7. TYLENOL W/ CODEINE NO. 3 [Concomitant]
  8. KLONOPIN [Concomitant]
  9. BACLOFEN [Concomitant]
  10. TOPAMAX [Concomitant]
  11. ADVIL [Concomitant]
  12. NEXIUM [Concomitant]
  13. PERCOCET [Concomitant]

REACTIONS (10)
  - ANAEMIA [None]
  - ATAXIA [None]
  - BURNING SENSATION [None]
  - CHEST DISCOMFORT [None]
  - LEUKOPENIA [None]
  - MULTIPLE SCLEROSIS RELAPSE [None]
  - MUSCLE SPASMS [None]
  - MUSCLE TWITCHING [None]
  - PAIN [None]
  - PARAESTHESIA [None]
